FAERS Safety Report 7806681-4 (Version None)
Quarter: 2011Q4

REPORT INFORMATION
  Report Type: 
  Country: None (occurrence: None)
  Receive Date: 20111011
  Receipt Date: 20111006
  Transmission Date: 20120403
  Serious: Yes (Hospitalization, Other)
  Sender: FDA-Public Use
  Company Number: US-JNJFOC-20111003116

PATIENT
  Sex: Female
  Weight: 80.29 kg

DRUGS (7)
  1. SIMPONI [Suspect]
     Indication: PSORIATIC ARTHROPATHY
     Route: 058
     Dates: start: 20100301
  2. CELEBREX [Concomitant]
     Indication: ARTHRITIS
     Route: 048
  3. COVEREX [Concomitant]
     Indication: HORMONE THERAPY
     Route: 048
  4. SULFASALAZINE [Concomitant]
     Indication: ARTHRITIS
     Route: 048
  5. SIMPONI [Suspect]
     Indication: OSTEOARTHRITIS
     Route: 058
     Dates: start: 20100301
  6. SIMPONI [Suspect]
     Indication: RHEUMATOID ARTHRITIS
     Route: 058
     Dates: start: 20100301
  7. METHOTREXATE [Concomitant]
     Indication: ARTHRITIS
     Route: 058
     Dates: start: 20100101

REACTIONS (7)
  - RECTOCELE [None]
  - ARTHRALGIA [None]
  - BRONCHITIS [None]
  - BLOOD CHOLESTEROL INCREASED [None]
  - ARTHRITIS [None]
  - DRUG DOSE OMISSION [None]
  - DEVICE FAILURE [None]
